FAERS Safety Report 18244382 (Version 2)
Quarter: 2020Q3

REPORT INFORMATION
  Report Type: Spontaneous
  Country: JP (occurrence: JP)
  Receive Date: 20200908
  Receipt Date: 20200922
  Transmission Date: 20201103
  Serious: Yes (Hospitalization)
  Sender: FDA-Public Use
  Company Number: JP-JNJFOC-20200831755

PATIENT
  Age: 88 Year
  Sex: Female

DRUGS (9)
  1. AZILVA [Concomitant]
     Active Substance: AZILSARTAN KAMEDOXOMIL
     Route: 048
  2. MEMANTINE HYDROCHLORIDE. [Concomitant]
     Active Substance: MEMANTINE HYDROCHLORIDE
     Route: 048
  3. MAGMITT [Concomitant]
     Active Substance: MAGNESIUM OXIDE
     Route: 048
  4. RISPERDAL [Suspect]
     Active Substance: RISPERIDONE
     Indication: SCHIZOPHRENIA
     Dosage: 1MG/ML
     Route: 048
     Dates: start: 201809, end: 201810
  5. REMINYL [Suspect]
     Active Substance: GALANTAMINE
     Indication: DEMENTIA
     Dosage: 4 MG
     Route: 048
  6. ADALAT [Concomitant]
     Active Substance: NIFEDIPINE
     Route: 048
  7. DEPAS [Concomitant]
  8. TENORMIN [Concomitant]
     Active Substance: ATENOLOL
     Route: 048
  9. TAKEPRON [Concomitant]
     Active Substance: LANSOPRAZOLE

REACTIONS (3)
  - Neuroleptic malignant syndrome [Recovered/Resolved]
  - Dehydration [Unknown]
  - Decreased appetite [Unknown]

NARRATIVE: CASE EVENT DATE: 201810
